FAERS Safety Report 5747186-4 (Version None)
Quarter: 2008Q2

REPORT INFORMATION
  Report Type: 
  Country: None (occurrence: None)
  Receive Date: 20080520
  Receipt Date: 20080520
  Transmission Date: 20081010
  Serious: Yes (Death, Hospitalization)
  Sender: FDA-Public Use
  Company Number: 2008BI012075

PATIENT
  Sex: Female

DRUGS (1)
  1. TYSABRI [Suspect]
     Indication: MULTIPLE SCLEROSIS

REACTIONS (4)
  - APALLIC SYNDROME [None]
  - DISEASE PROGRESSION [None]
  - HEMIPLEGIA [None]
  - MULTIPLE SCLEROSIS [None]
